FAERS Safety Report 8024958-7 (Version None)
Quarter: 2012Q1

REPORT INFORMATION
  Report Type: 
  Country: None (occurrence: None)
  Receive Date: 20120103
  Receipt Date: 20111223
  Transmission Date: 20120608
  Serious: Yes (Hospitalization)
  Sender: FDA-Public Use
  Company Number: KAD201112-000160

PATIENT
  Age: 30 Year
  Sex: Male

DRUGS (3)
  1. PEGINTERFERON ALFA-2A [Suspect]
     Indication: HEPATITIS C
     Dosage: 180 MICROGRAM/WEEK, SUBCUTANEOUS
     Route: 058
     Dates: start: 20091201
  2. RIBAVIRIN [Suspect]
     Dosage: 400 MG/DAY, ORALLY
     Route: 048
     Dates: start: 20091201
  3. MINERAL OIL (PARAFFIN) [Suspect]

REACTIONS (3)
  - LIPOGRANULOMA [None]
  - PENIS DISORDER [None]
  - INJECTION SITE REACTION [None]
